FAERS Safety Report 23423300 (Version 1)
Quarter: 2024Q1

REPORT INFORMATION
  Report Type: Spontaneous
  Country: US (occurrence: US)
  Receive Date: 20240119
  Receipt Date: 20240119
  Transmission Date: 20240410
  Serious: No
  Sender: FDA-Public Use
  Company Number: US-PURDUE-USA-2024-0307168

PATIENT
  Age: 48 Year
  Sex: Male

DRUGS (1)
  1. BUTRANS [Suspect]
     Active Substance: BUPRENORPHINE
     Indication: Pain management
     Dosage: 10 MCG/HR
     Route: 062
     Dates: start: 202306

REACTIONS (2)
  - Skin irritation [Unknown]
  - Pruritus [Unknown]

NARRATIVE: CASE EVENT DATE: 20231227
